FAERS Safety Report 6427134-4 (Version None)
Quarter: 2009Q4

REPORT INFORMATION
  Report Type: 
  Country: None (occurrence: None)
  Receive Date: 20091104
  Receipt Date: 20091030
  Transmission Date: 20100525
  Serious: Yes (Other)
  Sender: FDA-Public Use
  Company Number: CHPA2009US21163

PATIENT
  Age: 32 Year
  Sex: Female
  Weight: 70.295 kg

DRUGS (1)
  1. TRANSDERM SCOP [Suspect]
     Indication: MOTION SICKNESS
     Dosage: 1.5 MG, Q72H
     Route: 062
     Dates: start: 20091023, end: 20091026

REACTIONS (5)
  - ACTIVITIES OF DAILY LIVING IMPAIRED [None]
  - ANXIETY [None]
  - FEELING ABNORMAL [None]
  - VERTIGO [None]
  - VISION BLURRED [None]
